FAERS Safety Report 5822493-5 (Version None)
Quarter: 2008Q3

REPORT INFORMATION
  Report Type: 
  Country: None (occurrence: None)
  Receive Date: 20080722
  Receipt Date: 20080710
  Transmission Date: 20090109
  Serious: Yes (Hospitalization)
  Sender: FDA-Public Use
  Company Number: TCI2008A03366

PATIENT
  Age: 81 Year
  Sex: Male

DRUGS (6)
  1. LANSOPRAZOLE [Suspect]
     Indication: DUODENAL ULCER
     Dosage: 30 MG (30 MG, 1 IN 1 D) PER ORAL
     Route: 048
     Dates: start: 20080129
  2. LANSOPRAZOLE [Suspect]
     Indication: HELICOBACTER INFECTION
     Dosage: 30 MG (30 MG, 1 IN 1 D) PER ORAL
     Route: 048
     Dates: start: 20080129
  3. GLYBURIDE [Suspect]
     Indication: DIABETES MELLITUS
     Dosage: 7.5 MG (7.5 MG, 1 IN 1 D) PER ORAL; INCREASED FROM 2.5 TO 7.5 MG/DAY PER ORAL
     Route: 048
     Dates: end: 20080222
  4. GLYBURIDE [Suspect]
     Indication: DIABETES MELLITUS
     Dosage: 7.5 MG (7.5 MG, 1 IN 1 D) PER ORAL; INCREASED FROM 2.5 TO 7.5 MG/DAY PER ORAL
     Route: 048
     Dates: end: 20080308
  5. CLARITHROMYCIN [Suspect]
     Indication: HELICOBACTER INFECTION
     Dosage: 800 MG (400 MG, 2 IN 1 D) PER ORAL
     Route: 048
     Dates: start: 20080219, end: 20080225
  6. SAWACILLIN (AMOXICILLIN TRIHYDRATE) (CAPSULES) [Concomitant]

REACTIONS (8)
  - ALTERED STATE OF CONSCIOUSNESS [None]
  - BLOOD GLUCOSE INCREASED [None]
  - DRUG INTERACTION [None]
  - HYPERHIDROSIS [None]
  - HYPERVENTILATION [None]
  - HYPOGLYCAEMIA [None]
  - UNRESPONSIVE TO STIMULI [None]
  - WHEEZING [None]
